FAERS Safety Report 5966836-0 (Version None)
Quarter: 2008Q4

REPORT INFORMATION
  Report Type: 
  Country: None (occurrence: None)
  Receive Date: 20081125
  Receipt Date: 20081111
  Transmission Date: 20090506
  Serious: Yes (Hospitalization)
  Sender: FDA-Public Use
  Company Number: US-GENENTECH-271888

PATIENT
  Sex: Female

DRUGS (6)
  1. TRASTUZUMAB [Suspect]
     Indication: BREAST CANCER
     Dosage: 335 MG, Q3W
     Route: 042
     Dates: start: 20080919
  2. CARBOPLATIN [Suspect]
     Indication: BREAST CANCER
     Dosage: 570 MG, Q3W
     Route: 042
     Dates: start: 20080919
  3. DOCETAXEL [Suspect]
     Indication: BREAST CANCER
     Dosage: 120 MG, Q3W
     Dates: start: 20080919
  4. NEUPOGEN [Concomitant]
     Indication: DRUG USE FOR UNKNOWN INDICATION
  5. LOPERAMIDE HCL [Concomitant]
     Indication: DRUG USE FOR UNKNOWN INDICATION
  6. LORAZEPAM [Concomitant]
     Indication: DRUG USE FOR UNKNOWN INDICATION

REACTIONS (1)
  - CLOSTRIDIUM DIFFICILE COLITIS [None]
